FAERS Safety Report 8232819-3 (Version None)
Quarter: 2012Q1

REPORT INFORMATION
  Report Type: 
  Country: None (occurrence: None)
  Receive Date: 20120323
  Receipt Date: 20110704
  Transmission Date: 20120608
  Serious: Yes (Other)
  Sender: FDA-Public Use
  Company Number: PHHY2011CA72911

PATIENT
  Sex: Female

DRUGS (1)
  1. GILENYA [Suspect]
     Indication: RELAPSING-REMITTING MULTIPLE SCLEROSIS
     Dosage: 0.5 MG, DAIILY
     Route: 048
     Dates: start: 20110808

REACTIONS (4)
  - COELIAC DISEASE [None]
  - FULL BLOOD COUNT DECREASED [None]
  - NASOPHARYNGITIS [None]
  - HEART RATE DECREASED [None]
